FAERS Safety Report 5496770-4 (Version None)
Quarter: 2007Q4

REPORT INFORMATION
  Report Type: 
  Country: None (occurrence: None)
  Receive Date: 20071025
  Receipt Date: 20070813
  Transmission Date: 20080405
  Serious: Yes (Hospitalization)
  Sender: FDA-Public Use
  Company Number: A0669796A

PATIENT
  Age: 86 Year
  Sex: Male

DRUGS (18)
  1. ADVAIR DISKUS 100/50 [Suspect]
     Indication: CHRONIC OBSTRUCTIVE PULMONARY DISEASE
     Dosage: 1PUFF TWICE PER DAY
     Route: 055
     Dates: start: 20050101
  2. SPIRIVA [Concomitant]
  3. ALBUTEROL [Concomitant]
  4. ALLOPURINOL [Concomitant]
  5. ASPIRIN [Concomitant]
  6. ASTELIN [Concomitant]
  7. AVODART [Concomitant]
  8. COREG [Concomitant]
  9. DIOVAN [Concomitant]
  10. DULCOLAX [Concomitant]
  11. FISH OIL [Concomitant]
  12. FLOMAX [Concomitant]
  13. FUROSEMIDE [Concomitant]
  14. GENASYME [Concomitant]
  15. POTASSIUM CHLORIDE [Concomitant]
  16. NITROQUICK [Concomitant]
  17. UNKNOWN MEDICATION [Concomitant]
  18. VYTORIN [Concomitant]

REACTIONS (2)
  - PHARMACEUTICAL PRODUCT COMPLAINT [None]
  - PNEUMONIA [None]
